FAERS Safety Report 20660356 (Version 2)
Quarter: 2022Q2

REPORT INFORMATION
  Report Type: Report from Study
  Country: US (occurrence: None)
  Receive Date: 20220331
  Receipt Date: 20220622
  Transmission Date: 20220720
  Serious: Yes (Hospitalization)
  Sender: FDA-Public Use
  Company Number: US-Eisai Medical Research-EC-2022-111697

PATIENT
  Age: 56 Year
  Sex: Male
  Weight: 90.7 kg

DRUGS (8)
  1. LENVIMA [Suspect]
     Active Substance: LENVATINIB
     Indication: Renal cancer
     Route: 048
     Dates: start: 20220204, end: 202203
  2. LENVIMA [Suspect]
     Active Substance: LENVATINIB
     Indication: Bone cancer metastatic
     Route: 048
     Dates: start: 20220613
  3. GABAPENTIN [Concomitant]
     Active Substance: GABAPENTIN
  4. HYDROMORPHONE HCL [Concomitant]
     Active Substance: HYDROMORPHONE HYDROCHLORIDE
  5. KEYTRUDA [Concomitant]
     Active Substance: PEMBROLIZUMAB
  6. METFORMIN HYDROCHLORIDE [Concomitant]
     Active Substance: METFORMIN HYDROCHLORIDE
  7. MONTELUKAST SODIUM [Concomitant]
     Active Substance: MONTELUKAST SODIUM
  8. PANTOPRAZOLE SODIUM [Concomitant]
     Active Substance: PANTOPRAZOLE SODIUM

REACTIONS (2)
  - Fluid intake reduced [Unknown]
  - Decreased appetite [Unknown]

NARRATIVE: CASE EVENT DATE: 20220301
